FAERS Safety Report 18618092 (Version 1)
Quarter: 2020Q4

REPORT INFORMATION
  Report Type: Spontaneous
  Country: CA (occurrence: CA)
  Receive Date: 20201215
  Receipt Date: 20201215
  Transmission Date: 20210114
  Serious: Yes (Hospitalization)
  Sender: FDA-Public Use
  Company Number: CA-BAYER-2020-268555

PATIENT
  Age: 43 Year
  Sex: Female

DRUGS (16)
  1. DOCETAXEL. [Suspect]
     Active Substance: DOCETAXEL
     Dosage: 160 MG
     Route: 042
  2. ALEVE [Suspect]
     Active Substance: NAPROXEN SODIUM
  3. ASCORBIC ACID. [Suspect]
     Active Substance: ASCORBIC ACID
  4. PANTOPRAZOLE [Concomitant]
     Active Substance: PANTOPRAZOLE
  5. PROCHLORPERAZINE. [Suspect]
     Active Substance: PROCHLORPERAZINE
  6. TRASTUZUMAB. [Concomitant]
     Active Substance: TRASTUZUMAB
     Dosage: 440 MG
  7. FOSAPREPITANT [Concomitant]
     Active Substance: FOSAPREPITANT
  8. ACETAMINOPHEN. [Concomitant]
     Active Substance: ACETAMINOPHEN
  9. DEXAMETHASONE. [Concomitant]
     Active Substance: DEXAMETHASONE
  10. DICYCLOMINE HYDROCHLORIDE. [Concomitant]
     Active Substance: DICYCLOMINE HYDROCHLORIDE
  11. EPIRUBICIN HYDROCHLORIDE. [Concomitant]
     Active Substance: EPIRUBICIN HYDROCHLORIDE
  12. PERJETA [Concomitant]
     Active Substance: PERTUZUMAB
     Dosage: 840 MG
  13. PROCYTOX [Concomitant]
     Active Substance: CYCLOPHOSPHAMIDE
     Dosage: 200 MG
     Route: 042
  14. TYLENOL [Concomitant]
     Active Substance: ACETAMINOPHEN
  15. MEFENAMIC ACID. [Concomitant]
     Active Substance: MEFENAMIC ACID
  16. SALMO SALAR OIL [Concomitant]
     Active Substance: ATLANTIC SALMON OIL

REACTIONS (1)
  - Febrile neutropenia [Not Recovered/Not Resolved]
